FAERS Safety Report 7396512 (Version 4)
Quarter: 2019Q1

REPORT INFORMATION
  Report Type: Spontaneous
  Country: ES (occurrence: ES)
  Receive Date: 20100521
  Receipt Date: 20190129
  Transmission Date: 20190418
  Serious: Yes (Death, Hospitalization, Other)
  Sender: FDA-Public Use
  Company Number: PHHY2010ES31624

PATIENT
  Age: 77 Year
  Sex: Female

DRUGS (10)
  1. LOVASTATIN. [Concomitant]
     Active Substance: LOVASTATIN
     Indication: PRODUCT USED FOR UNKNOWN INDICATION
     Route: 065
  2. VALACYCLOVIR [Concomitant]
     Active Substance: VALACYCLOVIR HYDROCHLORIDE
     Indication: PRODUCT USED FOR UNKNOWN INDICATION
     Dosage: 500 MG, UNK (8 HOUR)
     Route: 065
  3. RITUXIMAB. [Suspect]
     Active Substance: RITUXIMAB
     Indication: B-CELL LYMPHOMA
  4. PREDNISONE. [Concomitant]
     Active Substance: PREDNISONE
     Indication: PARANEOPLASTIC PEMPHIGUS
     Route: 065
  5. CICLOSPORIN [Suspect]
     Active Substance: CYCLOSPORINE
     Indication: PARANEOPLASTIC PEMPHIGUS
     Dosage: 3 MG/KG, UNK
     Route: 048
     Dates: start: 2001, end: 200203
  6. INDAPAMIDE. [Concomitant]
     Active Substance: INDAPAMIDE
     Indication: PRODUCT USED FOR UNKNOWN INDICATION
     Route: 065
  7. AMILORIDE [Concomitant]
     Active Substance: AMILORIDE
     Indication: PRODUCT USED FOR UNKNOWN INDICATION
     Route: 065
  8. RITUXIMAB. [Suspect]
     Active Substance: RITUXIMAB
     Indication: PARANEOPLASTIC PEMPHIGUS
     Dosage: 375 MG/KG, UNK (FOR 4 WEEKS)
     Route: 042
     Dates: start: 200111, end: 200112
  9. METHYLPREDNISOLONE. [Concomitant]
     Active Substance: METHYLPREDNISOLONE
     Indication: PARANEOPLASTIC PEMPHIGUS
     Dosage: 90 MG/DAY
     Route: 042
     Dates: start: 2001
  10. METHYLPREDNISOLONE. [Concomitant]
     Active Substance: METHYLPREDNISOLONE
     Dosage: 40 MG, QD
     Route: 065
     Dates: start: 200203

REACTIONS (12)
  - Pyrexia [Recovered/Resolved]
  - Death [Fatal]
  - Myopathy [Unknown]
  - Diarrhoea [Recovered/Resolved]
  - Stomatitis [Unknown]
  - Listeria sepsis [Recovered/Resolved]
  - Intentional product use issue [Unknown]
  - Herpes virus infection [Recovered/Resolved]
  - Hypophagia [Recovered/Resolved]
  - Mycobacterium chelonae infection [Recovered/Resolved]
  - Mouth ulceration [Recovered/Resolved]
  - Off label use [Unknown]

NARRATIVE: CASE EVENT DATE: 2001
